FAERS Safety Report 19518834 (Version 6)
Quarter: 2021Q4

REPORT INFORMATION
  Report Type: Report from Study
  Country: US (occurrence: US)
  Receive Date: 20210712
  Receipt Date: 20211201
  Transmission Date: 20220303
  Serious: Yes (Hospitalization, Other)
  Sender: FDA-Public Use
  Company Number: NVSC2021US154463

PATIENT
  Sex: Female

DRUGS (4)
  1. ENTRESTO [Suspect]
     Active Substance: SACUBITRIL\VALSARTAN
     Indication: Product used for unknown indication
     Dosage: UNK, BID
     Route: 048
  2. AMIODARONE [Suspect]
     Active Substance: AMIODARONE
     Indication: Product used for unknown indication
     Dosage: 200 MG, QD
     Route: 065
     Dates: start: 20211018
  3. AMIODARONE [Suspect]
     Active Substance: AMIODARONE
     Dosage: 100 MG, QD
     Route: 065
  4. METOPROLOL [Suspect]
     Active Substance: METOPROLOL
     Indication: Product used for unknown indication
     Dosage: 50 MG, QD
     Route: 065

REACTIONS (7)
  - Atrial fibrillation [Recovering/Resolving]
  - Blood potassium increased [Recovering/Resolving]
  - Blood sodium decreased [Recovering/Resolving]
  - Heart rate decreased [Recovered/Resolved]
  - Blood pressure decreased [Recovered/Resolved]
  - Breath sounds abnormal [Unknown]
  - Memory impairment [Not Recovered/Not Resolved]
